APPROVED DRUG PRODUCT: THEOPHYLLINE
Active Ingredient: THEOPHYLLINE
Strength: 200MG
Dosage Form/Route: CAPSULE;ORAL
Application: A084731 | Product #001
Applicant: RP SCHERER NORTH AMERICA
Approved: Nov 7, 1986 | RLD: No | RS: No | Type: DISCN